FAERS Safety Report 26108899 (Version 1)
Quarter: 2025Q4

REPORT INFORMATION
  Report Type: Spontaneous
  Country: JP (occurrence: JP)
  Receive Date: 20251201
  Receipt Date: 20251201
  Transmission Date: 20260117
  Serious: Yes (Hospitalization, Other)
  Sender: MERCK SHARP & DOHME LLC
  Company Number: JP-BRISTOL-MYERS SQUIBB COMPANY-2024-092672

PATIENT
  Age: 51 Year
  Sex: Male
  Weight: 71 kg

DRUGS (52)
  1. EMEND [Suspect]
     Active Substance: APREPITANT
     Indication: Prophylaxis of nausea and vomiting
     Dosage: DOSE DESCRIPTION : UNK
     Route: 048
     Dates: start: 20240523, end: 20240525
  2. OPDIVO [Suspect]
     Active Substance: NIVOLUMAB
     Indication: Colon cancer
     Dosage: DOSE DESCRIPTION : UNK
     Route: 041
     Dates: start: 20240722
  3. OPDIVO [Suspect]
     Active Substance: NIVOLUMAB
     Indication: Colon cancer
     Dosage: DOSE DESCRIPTION : UNK
     Route: 041
     Dates: start: 20240723
  4. FLUOROURACIL [Concomitant]
     Active Substance: FLUOROURACIL
     Indication: Colorectal cancer
     Dosage: DOSE DESCRIPTION : 4450 MG
     Route: 042
     Dates: start: 20221028
  5. FLUOROURACIL [Concomitant]
     Active Substance: FLUOROURACIL
     Indication: Colorectal cancer
     Dosage: DOSE DESCRIPTION : 750 MG
     Route: 040
     Dates: start: 20221028
  6. FLUOROURACIL [Concomitant]
     Active Substance: FLUOROURACIL
     Indication: Colorectal cancer
     Dosage: DOSE DESCRIPTION : UNK MG
     Route: 042
     Dates: start: 20240509
  7. FLUOROURACIL [Concomitant]
     Active Substance: FLUOROURACIL
     Indication: Colorectal cancer
     Dosage: DOSE DESCRIPTION : UNK
     Route: 040
     Dates: start: 20240523
  8. FLUOROURACIL [Concomitant]
     Active Substance: FLUOROURACIL
     Indication: Colorectal cancer
     Dosage: DOSE DESCRIPTION : 4450 MG
     Route: 042
     Dates: start: 20240523, end: 20240525
  9. OXALIPLATIN [Concomitant]
     Active Substance: OXALIPLATIN
     Indication: Colorectal cancer
     Dosage: DOSE DESCRIPTION : 160 MG
     Route: 042
     Dates: start: 20221028
  10. OXALIPLATIN [Concomitant]
     Active Substance: OXALIPLATIN
     Indication: Colorectal cancer
     Dosage: DOSE DESCRIPTION : 130 MG
     Route: 042
     Dates: start: 20240523
  11. LEUCOVORIN [Concomitant]
     Active Substance: LEUCOVORIN\LEUCOVORIN CALCIUM
     Indication: Colorectal cancer
     Dosage: DOSE DESCRIPTION : 740 MG
     Route: 042
     Dates: start: 20221028
  12. LEUCOVORIN [Concomitant]
     Active Substance: LEUCOVORIN\LEUCOVORIN CALCIUM
     Indication: Colorectal cancer
     Dosage: DOSE DESCRIPTION : 740 MG
     Route: 042
     Dates: start: 20240523
  13. ZYPREXA [Concomitant]
     Active Substance: OLANZAPINE
     Indication: Prophylaxis
     Dosage: DOSE DESCRIPTION : UNK
     Route: 048
     Dates: start: 20240524, end: 20240530
  14. METHYLCOBALAMIN [Concomitant]
     Active Substance: METHYLCOBALAMIN
     Indication: Peripheral sensory neuropathy
     Dosage: DOSE DESCRIPTION : 1500 UG
     Route: 048
     Dates: start: 20230706, end: 20240812
  15. MIROGABALIN BESYLATE [Concomitant]
     Active Substance: MIROGABALIN BESYLATE
     Indication: Peripheral sensory neuropathy
     Dosage: DOSE DESCRIPTION : UNK
     Route: 048
     Dates: start: 20230901
  16. HEPARINOID [Concomitant]
     Indication: Product used for unknown indication
     Dosage: DOSE DESCRIPTION : OIL BASED CREAM
     Route: 061
     Dates: start: 20231115, end: 20240708
  17. HEPARINOID [Concomitant]
     Indication: Product used for unknown indication
     Dosage: DOSE DESCRIPTION : SPRAY
     Route: 062
     Dates: start: 20231122
  18. YERVOY [Suspect]
     Active Substance: IPILIMUMAB
     Indication: Colon cancer
     Dosage: UNK
     Route: 042
     Dates: start: 20240722
  19. YERVOY [Suspect]
     Active Substance: IPILIMUMAB
     Indication: Colon cancer
     Dosage: UNK
     Route: 042
     Dates: start: 20240723
  20. DECADRON [Concomitant]
     Active Substance: DEXAMETHASONE
     Indication: Prophylaxis
     Dosage: DOSE DESCRIPTION : 0.5 MG
     Route: 048
     Dates: start: 20240524, end: 20240526
  21. CLARITHROMYCIN [Concomitant]
     Active Substance: CLARITHROMYCIN
     Indication: Product used for unknown indication
     Dosage: DOSE DESCRIPTION : UNK
     Route: 048
     Dates: start: 20240214, end: 20240531
  22. LANSOPRAZOLE [Concomitant]
     Active Substance: LANSOPRAZOLE
     Indication: Gastrooesophageal reflux disease
     Dosage: DOSE DESCRIPTION : UNK
     Route: 048
     Dates: start: 20240523, end: 20240608
  23. DOMPERIDONE [Concomitant]
     Active Substance: DOMPERIDONE
     Indication: Nausea
     Dosage: DOSE DESCRIPTION : UNK
     Route: 042
     Dates: start: 20240530, end: 20240720
  24. DOMPERIDONE [Concomitant]
     Active Substance: DOMPERIDONE
     Indication: Nausea
     Dosage: DOSE DESCRIPTION : UNK
     Route: 065
     Dates: start: 20240626, end: 20240710
  25. PRIMPERAN [Concomitant]
     Active Substance: METOCLOPRAMIDE HYDROCHLORIDE
     Indication: Nausea
     Dosage: DOSE DESCRIPTION : UNK
     Route: 048
     Dates: start: 20240530, end: 20240720
  26. PRIMPERAN [Concomitant]
     Active Substance: METOCLOPRAMIDE HYDROCHLORIDE
     Indication: Nausea
     Dosage: DOSE DESCRIPTION : UNK
     Route: 042
     Dates: start: 20240606, end: 20240606
  27. PRIMPERAN [Concomitant]
     Active Substance: METOCLOPRAMIDE HYDROCHLORIDE
     Indication: Nausea
     Dosage: DOSE DESCRIPTION : UNK
     Route: 065
  28. LOXOPROFEN SODIUM [Concomitant]
     Active Substance: LOXOPROFEN SODIUM
     Indication: Pyrexia
     Dosage: DOSE DESCRIPTION : UNK
     Route: 048
     Dates: start: 20240603, end: 20240605
  29. METOCLOPRAMIDE [Concomitant]
     Active Substance: METOCLOPRAMIDE
     Indication: Nausea
     Dosage: DOSE DESCRIPTION : UNK
     Route: 048
     Dates: start: 20240603
  30. MIYA-BM [Concomitant]
     Active Substance: CLOSTRIDIUM BUTYRICUM SPORES STRAIN M-55
     Indication: Prophylaxis
     Dosage: DOSE DESCRIPTION : UNK
     Route: 048
     Dates: start: 20240603, end: 20240606
  31. REBAMIPIDE [Concomitant]
     Active Substance: REBAMIPIDE
     Indication: Prophylaxis
     Dosage: DOSE DESCRIPTION : UNK
     Route: 048
     Dates: start: 20240603, end: 20240606
  32. SOLITA-T 3G [Concomitant]
     Dosage: DOSE DESCRIPTION : UNK
     Route: 042
     Dates: start: 20240606, end: 20240615
  33. SOLITA-T 3G [Concomitant]
     Dosage: DOSE DESCRIPTION : UNK
     Route: 065
     Dates: start: 20240629, end: 20240720
  34. AMINO ACIDS\DEXTROSE\ELECTROLYTES NOS\MINERALS\VITAMINS [Concomitant]
     Active Substance: AMINO ACIDS\DEXTROSE\ELECTROLYTES NOS\MINERALS\VITAMINS
     Dosage: DOSE DESCRIPTION : UNK
     Route: 042
     Dates: start: 20240625
  35. OMEPRAZOLE [Concomitant]
     Active Substance: OMEPRAZOLE
     Dosage: DOSE DESCRIPTION : UNK
     Route: 065
     Dates: start: 20240608, end: 20240724
  36. CARBAZOCHROME SODIUM SULFONATE [Concomitant]
     Active Substance: CARBAZOCHROME SODIUM SULFONATE
     Dosage: DOSE DESCRIPTION : UNK
     Route: 065
     Dates: start: 20240611, end: 20240720
  37. LACTEC-D [Concomitant]
     Dosage: DOSE DESCRIPTION : UNK
     Route: 065
     Dates: start: 20240629, end: 20240720
  38. LIDOCAINE HYDROCHLORIDE [Concomitant]
     Active Substance: LIDOCAINE HYDROCHLORIDE
     Dosage: DOSE DESCRIPTION : UNK
     Route: 065
     Dates: start: 20240705, end: 20240719
  39. MIDAZOLAM [Concomitant]
     Active Substance: MIDAZOLAM
     Dosage: DOSE DESCRIPTION : UNK
     Route: 065
     Dates: start: 20240705, end: 20240719
  40. PENTAZOCINE [Concomitant]
     Active Substance: PENTAZOCINE
     Dosage: DOSE DESCRIPTION : UNK
     Route: 065
     Dates: start: 20240719, end: 20240730
  41. TRANSAMIN [Concomitant]
     Active Substance: TRANEXAMIC ACID
     Dosage: DOSE DESCRIPTION : UNK
     Route: 065
     Dates: start: 20240611, end: 20240720
  42. ACETAMINOPHEN [Concomitant]
     Active Substance: ACETAMINOPHEN
     Dosage: DOSE DESCRIPTION : UNK
     Route: 065
     Dates: start: 20240720, end: 20240802
  43. CALONAL [Concomitant]
     Active Substance: ACETAMINOPHEN
     Dosage: DOSE DESCRIPTION : UNK
     Route: 065
     Dates: start: 20240720, end: 20240728
  44. ESOMEPRAZOLE [Concomitant]
     Active Substance: ESOMEPRAZOLE
     Dosage: DOSE DESCRIPTION : UNK
     Route: 065
     Dates: start: 20240725, end: 20240812
  45. MOSAPRIDE CITRATE [Concomitant]
     Active Substance: MOSAPRIDE CITRATE
     Dosage: DOSE DESCRIPTION : UNK
     Route: 065
     Dates: start: 20240610, end: 20240710
  46. ACOTIAMIDE HYDROCHLORIDE [Concomitant]
     Active Substance: ACOTIAMIDE HYDROCHLORIDE
     Dosage: DOSE DESCRIPTION : UNK
     Route: 065
     Dates: start: 20240611, end: 20240710
  47. FERROUS SULFATE [Concomitant]
     Active Substance: FERROUS SULFATE
     Dosage: DOSE DESCRIPTION : UNK
     Route: 065
     Dates: start: 20240625, end: 20240710
  48. VITAMEDIN [CYANOCOBALAMIN;PYRIDOXINE HYDROCHLORIDE;THIAMINE HYDROCH... [Concomitant]
     Dosage: DOSE DESCRIPTION : UNK
     Route: 065
     Dates: start: 20240626, end: 20240704
  49. ULINASTATIN [Concomitant]
     Active Substance: ULINASTATIN
     Dosage: DOSE DESCRIPTION : UNK
     Route: 065
     Dates: start: 20240705, end: 20240706
  50. CEFOPERAZONE SODIUM\SULBACTAM SODIUM [Concomitant]
     Active Substance: CEFOPERAZONE SODIUM\SULBACTAM SODIUM
     Indication: Prophylaxis
     Dosage: DOSE DESCRIPTION : UNK
     Route: 042
     Dates: start: 20240705, end: 20240720
  51. IRON SUCROSE [Concomitant]
     Active Substance: IRON SUCROSE
     Indication: Adverse event
     Dosage: DOSE DESCRIPTION : UNK
     Route: 042
     Dates: start: 20240614, end: 20240625
  52. SOYBEAN OIL [Concomitant]
     Active Substance: SOYBEAN OIL
     Dosage: DOSE DESCRIPTION : UNK?CONCENTRATION: 10 PERCENT
     Route: 042
     Dates: start: 20240712, end: 20240822

REACTIONS (13)
  - Infection [Recovered/Resolved]
  - Infection [Recovered/Resolved]
  - Cancer pain [Not Recovered/Not Resolved]
  - Cytokine release syndrome [Unknown]
  - Pneumonitis [Unknown]
  - Pneumonia [Recovered/Resolved]
  - Duodenal stenosis [Not Recovered/Not Resolved]
  - Biliary dilatation [Unknown]
  - Pneumonitis [Recovering/Resolving]
  - Pulmonary embolism [Unknown]
  - Adverse event [Unknown]
  - Hepatic enzyme increased [Unknown]
  - Urinary tract infection [Unknown]

NARRATIVE: CASE EVENT DATE: 20240606
